FAERS Safety Report 13959423 (Version 1)
Quarter: 2017Q3

REPORT INFORMATION
  Report Type: Spontaneous
  Country: US (occurrence: US)
  Receive Date: 20170911
  Receipt Date: 20170911
  Transmission Date: 20171128
  Serious: No
  Sender: FDA-Public Use
  Company Number: US-LEXICON PHARMACEUTICALS, INC-17-1606-00749

PATIENT
  Sex: Female

DRUGS (9)
  1. LOMOTIL [Concomitant]
     Active Substance: ATROPINE SULFATE\DIPHENOXYLATE HYDROCHLORIDE
  2. AMLODIPINE [Concomitant]
  3. TELOTRISTAT ETHYL [Suspect]
     Active Substance: TELOTRISTAT ETHYL
     Indication: CARCINOID SYNDROME
     Route: 048
     Dates: start: 20170718, end: 201708
  4. ZOLOFT [Concomitant]
  5. KLOR-CON [Concomitant]
     Active Substance: POTASSIUM CHLORIDE
  6. SOMATULINE DEPOT [Concomitant]
     Active Substance: LANREOTIDE ACETATE
  7. MARINOL [Concomitant]
     Active Substance: DRONABINOL
  8. LISINOPRIL [Concomitant]
  9. DILAUDID [Concomitant]

REACTIONS (1)
  - Hepatic enzyme increased [Unknown]

NARRATIVE: CASE EVENT DATE: 2017
